FAERS Safety Report 7179001-9 (Version None)
Quarter: 2010Q4

REPORT INFORMATION
  Report Type: 
  Country: None (occurrence: None)
  Receive Date: 20101221
  Receipt Date: 20101214
  Transmission Date: 20110411
  Serious: Yes (Life-Threatening, Hospitalization)
  Sender: FDA-Public Use
  Company Number: PHBS1999AU04708

PATIENT
  Sex: Female

DRUGS (7)
  1. CLOZARIL [Suspect]
     Indication: SCHIZOPHRENIA
     Dosage: 350 MG DAILY
     Route: 048
     Dates: start: 19990401
  2. CLOZARIL [Suspect]
     Dosage: 300 MG DAILY
     Route: 048
  3. ASCORBIC ACID [Concomitant]
  4. HALOPERIDOL [Concomitant]
  5. VENLAFAXINE [Concomitant]
     Route: 065
     Dates: start: 19990801
  6. CITALOPRAM HYDROBROMIDE [Concomitant]
     Dates: start: 19990301, end: 19990701
  7. ERGOCALCIFEROL [Concomitant]

REACTIONS (2)
  - LYMPHOMA [None]
  - MALAISE [None]
